FAERS Safety Report 7381211-2 (Version None)
Quarter: 2011Q1

REPORT INFORMATION
  Report Type: 
  Country: None (occurrence: None)
  Receive Date: 20110329
  Receipt Date: 20110308
  Transmission Date: 20110831
  Serious: Yes (Hospitalization)
  Sender: FDA-Public Use
  Company Number: A0901547A

PATIENT
  Sex: Male
  Weight: 73 kg

DRUGS (1)
  1. OFATUMUMAB [Suspect]
     Indication: DIFFUSE LARGE B-CELL LYMPHOMA
     Dosage: 7300NG CUMULATIVE DOSE
     Route: 042
     Dates: start: 20100527, end: 20100730

REACTIONS (1)
  - LYMPHOMA [None]
